FAERS Safety Report 11771076 (Version 1)
Quarter: 2015Q4

REPORT INFORMATION
  Report Type: Report from Study
  Country: US (occurrence: US)
  Receive Date: 20151124
  Receipt Date: 20151124
  Transmission Date: 20160304
  Serious: No
  Sender: FDA-Public Use
  Company Number: PHHY2011US119193

PATIENT
  Age: 47 Year
  Sex: Female

DRUGS (27)
  1. LUCENTIS [Suspect]
     Active Substance: RANIBIZUMAB
     Dosage: UNK UKN, UNK
     Route: 031
     Dates: start: 20121010
  2. NAPROXEN DR TABLETS [Suspect]
     Active Substance: NAPROXEN
     Dosage: UNK UKN, UNK
     Dates: start: 20111013
  3. CRESTOR [Concomitant]
     Active Substance: ROSUVASTATIN CALCIUM
     Indication: PRODUCT USED FOR UNKNOWN INDICATION
     Dosage: UNK UKN, UNK
     Route: 065
  4. LUCENTIS [Suspect]
     Active Substance: RANIBIZUMAB
     Dosage: UNK UKN, UNK
     Route: 031
     Dates: start: 20120510
  5. VITAMIN D [Concomitant]
     Active Substance: CHOLECALCIFEROL
     Indication: PRODUCT USED FOR UNKNOWN INDICATION
     Dosage: UNK UKN, UNK
     Route: 065
  6. LUCENTIS [Suspect]
     Active Substance: RANIBIZUMAB
     Dosage: UNK UKN, UNK
     Route: 031
     Dates: start: 20120329
  7. LUCENTIS [Suspect]
     Active Substance: RANIBIZUMAB
     Dosage: UNK UKN, UNK
     Route: 031
     Dates: start: 20121115
  8. LUCENTIS [Suspect]
     Active Substance: RANIBIZUMAB
     Dosage: UNK UKN, UNK
     Route: 031
     Dates: start: 20130117
  9. SINGULAIR [Concomitant]
     Active Substance: MONTELUKAST SODIUM
     Indication: PRODUCT USED FOR UNKNOWN INDICATION
     Dosage: UNK UKN, UNK
     Route: 065
  10. LUCENTIS [Suspect]
     Active Substance: RANIBIZUMAB
     Dosage: UNK UKN, UNK
     Route: 031
     Dates: start: 20120802
  11. NAPROXEN DR TABLETS [Suspect]
     Active Substance: NAPROXEN
     Indication: PRODUCT USED FOR UNKNOWN INDICATION
     Dosage: UNK UKN, UNK
     Route: 065
  12. NAPROXEN DR TABLETS [Suspect]
     Active Substance: NAPROXEN
     Dosage: UNK UKN, UNK
     Dates: start: 20110908
  13. PLAVIX [Concomitant]
     Active Substance: CLOPIDOGREL BISULFATE
     Indication: PRODUCT USED FOR UNKNOWN INDICATION
     Dosage: UNK UKN, UNK
     Route: 065
  14. LUCENTIS [Suspect]
     Active Substance: RANIBIZUMAB
     Indication: RETINAL DEGENERATION
     Dosage: 0.5 MG, QMO
     Route: 031
     Dates: start: 20110728
  15. LUCENTIS [Suspect]
     Active Substance: RANIBIZUMAB
     Dosage: UNK UKN, UNK
     Route: 031
     Dates: start: 20130228
  16. LUCENTIS [Suspect]
     Active Substance: RANIBIZUMAB
     Dosage: UNK UKN, UNK
     Route: 031
     Dates: start: 20130509
  17. CIPROFLOXACIN. [Concomitant]
     Active Substance: CIPROFLOXACIN
     Indication: PRODUCT USED FOR UNKNOWN INDICATION
     Dosage: UNK UKN, IN EYE
     Route: 065
  18. DEXILANT [Concomitant]
     Active Substance: DEXLANSOPRAZOLE
     Indication: PRODUCT USED FOR UNKNOWN INDICATION
     Dosage: UNK UKN, UNK
     Route: 065
  19. MULTI-VIT [Concomitant]
     Active Substance: VITAMINS
     Indication: PRODUCT USED FOR UNKNOWN INDICATION
     Dosage: UNK UKN, UNK
     Route: 065
  20. BETADIN [Concomitant]
     Indication: PRODUCT USED FOR UNKNOWN INDICATION
     Dosage: UNK UKN, UNK
     Route: 065
  21. LUCENTIS [Suspect]
     Active Substance: RANIBIZUMAB
     Indication: CHOROIDAL NEOVASCULARISATION
     Dosage: UNK UKN, UNK
     Route: 031
     Dates: start: 20120119
  22. LUCENTIS [Suspect]
     Active Substance: RANIBIZUMAB
     Dosage: UNK UKN, UNK
     Route: 031
     Dates: start: 20121213
  23. LUCENTIS [Suspect]
     Active Substance: RANIBIZUMAB
     Dosage: UNK UKN, UNK
     Route: 031
     Dates: start: 20130404
  24. LUCENTIS [Suspect]
     Active Substance: RANIBIZUMAB
     Dosage: UNK UKN, UNK
     Route: 031
     Dates: start: 20120223
  25. LUCENTIS [Suspect]
     Active Substance: RANIBIZUMAB
     Dosage: UNK UKN, UNK
     Route: 031
     Dates: start: 20120627
  26. LUCENTIS [Suspect]
     Active Substance: RANIBIZUMAB
     Dosage: UNK UKN, UNK
     Route: 031
     Dates: start: 20120906
  27. ACETAMINOPHEN. [Concomitant]
     Active Substance: ACETAMINOPHEN
     Indication: PRODUCT USED FOR UNKNOWN INDICATION
     Dosage: UNK UKN, UNK
     Route: 065

REACTIONS (7)
  - Vision blurred [Unknown]
  - Vitreous floaters [Unknown]
  - Angiogram abnormal [Unknown]
  - Off label use [Unknown]
  - Eye pain [Unknown]
  - Visual acuity reduced [Unknown]
  - Vitreous detachment [Unknown]

NARRATIVE: CASE EVENT DATE: 20111110
